FAERS Safety Report 9928991 (Version 2)
Quarter: 2014Q1

REPORT INFORMATION
  Report Type: Spontaneous
  Country: US (occurrence: US)
  Receive Date: 20140227
  Receipt Date: 20140227
  Transmission Date: 20141002
  Serious: Yes (Other)
  Sender: FDA-Public Use
  Company Number: US-LUNDBECK-DKLU1093668

PATIENT
  Sex: Male

DRUGS (2)
  1. SABRIL (FOR ORAL SOLUTION) [Suspect]
     Indication: INFANTILE SPASMS
     Route: 048
     Dates: start: 201111
  2. SABRIL (FOR ORAL SOLUTION) [Suspect]
     Dates: start: 201311, end: 201311

REACTIONS (3)
  - Retinal disorder [Unknown]
  - Visual impairment [Unknown]
  - Neuropathy peripheral [Unknown]
